FAERS Safety Report 4465020-X (Version None)
Quarter: 2004Q3

REPORT INFORMATION
  Report Type: 
  Country: None (occurrence: None)
  Receive Date: 20040929
  Receipt Date: 20040910
  Transmission Date: 20050211
  Serious: Yes (Hospitalization)
  Sender: FDA-Public Use
  Company Number: US_0409105406

PATIENT
  Age: 65 Year
  Sex: Male

DRUGS (15)
  1. PEMETREXED [Suspect]
     Indication: MESOTHELIOMA
     Dosage: 500 MG/M2 OTHER
     Route: 050
  2. GEMCITABINE HYDROCHLORIDE-IV (GEMCITABINE) [Suspect]
     Indication: MESOTHELIOMA
     Dosage: 1250 MG/M2 OTHER
     Route: 050
     Dates: start: 20040826
  3. LOVENOX [Concomitant]
  4. VITAMIN B-12 [Concomitant]
  5. FOLIC ACID [Concomitant]
  6. PROTONIX [Concomitant]
  7. BENADRYL [Concomitant]
  8. PERCOCET [Concomitant]
  9. TERAZOSIN HCL [Concomitant]
  10. SENNA [Concomitant]
  11. ZOCOR [Concomitant]
  12. GLUCOSAMINE [Concomitant]
  13. VITAMIN E (HERBAL OIL NOS) [Concomitant]
  14. ADVAIR DISKUS 100/50 [Concomitant]
  15. COZAAR [Concomitant]

REACTIONS (10)
  - ASTHENIA [None]
  - CEREBELLAR SYNDROME [None]
  - HAEMATOCRIT DECREASED [None]
  - MYOCLONUS [None]
  - NAUSEA [None]
  - PERIPHERAL MOTOR NEUROPATHY [None]
  - PERIPHERAL SENSORY NEUROPATHY [None]
  - RASH [None]
  - TREMOR [None]
  - WHITE BLOOD CELLS URINE POSITIVE [None]
